FAERS Safety Report 4527108-4 (Version None)
Quarter: 2004Q4

REPORT INFORMATION
  Report Type: 
  Country: None (occurrence: None)
  Receive Date: 20041201
  Receipt Date: 20041108
  Transmission Date: 20050328
  Serious: Yes (Other)
  Sender: FDA-Public Use
  Company Number: US096613

PATIENT
  Sex: Male

DRUGS (1)
  1. ENBREL [Suspect]
     Indication: PSORIASIS
     Dosage: 25 MG, 2 IN 1 WEEKS, SC
     Route: 058
     Dates: start: 20030107, end: 20040924

REACTIONS (2)
  - CHEST PAIN [None]
  - MYELITIS TRANSVERSE [None]
